FAERS Safety Report 8015367-5 (Version None)
Quarter: 2011Q4

REPORT INFORMATION
  Report Type: 
  Country: None (occurrence: None)
  Receive Date: 20111230
  Receipt Date: 20111220
  Transmission Date: 20120403
  Serious: Yes (Hospitalization)
  Sender: FDA-Public Use
  Company Number: US-ELI_LILLY_AND_COMPANY-US201110004465

PATIENT
  Sex: Female

DRUGS (9)
  1. AMBIEN [Concomitant]
  2. SEASONIQUE [Concomitant]
  3. LORAZEPAM [Concomitant]
  4. ZONEGRAN [Concomitant]
  5. LACTULOSE [Concomitant]
  6. FORTEO [Suspect]
     Indication: OSTEOPOROSIS
     Dosage: 20 UG, QD
     Route: 065
     Dates: start: 20110518, end: 20110811
  7. KEPPRA [Concomitant]
  8. VITAMIN D [Concomitant]
  9. ALENDRONATE SODIUM [Concomitant]

REACTIONS (6)
  - URINARY TRACT OBSTRUCTION [None]
  - HOSPITALISATION [None]
  - RENAL TUBULAR DISORDER [None]
  - RENAL DISORDER [None]
  - NEPHROLITHIASIS [None]
  - URINARY RETENTION [None]
